FAERS Safety Report 11347086 (Version 1)
Quarter: 2015Q3

REPORT INFORMATION
  Report Type: Spontaneous
  Country: US (occurrence: US)
  Receive Date: 20150803
  Receipt Date: 20150803
  Transmission Date: 20151125
  Serious: No
  Sender: FDA-Public Use
  Company Number: US-ELI_LILLY_AND_COMPANY-US201104000426

PATIENT
  Age: 57 Year
  Sex: Male

DRUGS (12)
  1. ZYPREXA [Suspect]
     Active Substance: OLANZAPINE
     Dosage: 15 MG, QD
     Route: 065
  2. ZYPREXA [Suspect]
     Active Substance: OLANZAPINE
     Dosage: 10 MG, QD
     Route: 065
  3. AMBIEN CR [Concomitant]
     Active Substance: ZOLPIDEM TARTRATE
  4. ZYPREXA [Suspect]
     Active Substance: OLANZAPINE
     Dosage: 30 MG, QD
     Route: 065
     Dates: start: 201012
  5. ZYPREXA [Suspect]
     Active Substance: OLANZAPINE
     Dosage: 5 MG, QD
     Route: 065
  6. ZYPREXA [Suspect]
     Active Substance: OLANZAPINE
     Dosage: 20 MG, QD
     Route: 065
  7. ABILIFY [Concomitant]
     Active Substance: ARIPIPRAZOLE
  8. ZYPREXA [Suspect]
     Active Substance: OLANZAPINE
     Dosage: 30 MG, QD
     Route: 065
  9. SEROQUEL [Concomitant]
     Active Substance: QUETIAPINE FUMARATE
  10. ZYPREXA [Suspect]
     Active Substance: OLANZAPINE
     Dosage: 20 MG, QD
     Route: 065
  11. ZYPREXA [Suspect]
     Active Substance: OLANZAPINE
     Dosage: UNK UNK, UNKNOWN
     Route: 065
  12. KLONOPIN [Concomitant]
     Active Substance: CLONAZEPAM

REACTIONS (8)
  - Appetite disorder [Unknown]
  - Overdose [Unknown]
  - Bipolar disorder [Unknown]
  - Weight decreased [Recovered/Resolved]
  - Weight increased [Recovered/Resolved]
  - Weight increased [Unknown]
  - Blood pressure increased [Recovered/Resolved]
  - Blood pressure increased [Unknown]

NARRATIVE: CASE EVENT DATE: 201012
